FAERS Safety Report 19382671 (Version 2)
Quarter: 2022Q1

REPORT INFORMATION
  Report Type: Spontaneous
  Country: US (occurrence: None)
  Receive Date: 20210607
  Receipt Date: 20220301
  Transmission Date: 20220423
  Serious: Yes (Other)
  Sender: FDA-Public Use
  Company Number: 2021A496317

PATIENT
  Age: 43 Year
  Sex: Female
  Weight: 156.9 kg

DRUGS (52)
  1. NEXIUM [Suspect]
     Active Substance: ESOMEPRAZOLE MAGNESIUM
     Indication: Gastrooesophageal reflux disease
     Route: 048
  2. NEXIUM [Suspect]
     Active Substance: ESOMEPRAZOLE MAGNESIUM
     Indication: Gastrooesophageal reflux disease
     Route: 048
  3. NEXIUM [Suspect]
     Active Substance: ESOMEPRAZOLE MAGNESIUM
     Indication: Gastrooesophageal reflux disease
     Route: 048
     Dates: start: 2012, end: 2016
  4. NEXIUM [Suspect]
     Active Substance: ESOMEPRAZOLE MAGNESIUM
     Indication: Gastrooesophageal reflux disease
     Route: 048
     Dates: start: 2012, end: 2016
  5. NEXIUM [Suspect]
     Active Substance: ESOMEPRAZOLE MAGNESIUM
     Indication: Gastrooesophageal reflux disease
     Dosage: GENERIC
     Route: 065
     Dates: start: 2012, end: 2018
  6. NEXIUM [Suspect]
     Active Substance: ESOMEPRAZOLE MAGNESIUM
     Indication: Gastrooesophageal reflux disease
     Dosage: GENERIC
     Route: 065
     Dates: start: 2012, end: 2018
  7. PRILOSEC [Suspect]
     Active Substance: OMEPRAZOLE MAGNESIUM
     Indication: Gastrooesophageal reflux disease
     Route: 048
  8. PRILOSEC [Suspect]
     Active Substance: OMEPRAZOLE MAGNESIUM
     Indication: Gastrooesophageal reflux disease
     Route: 048
  9. PRILOSEC [Suspect]
     Active Substance: OMEPRAZOLE MAGNESIUM
     Indication: Gastrooesophageal reflux disease
     Route: 048
     Dates: start: 2012, end: 2017
  10. PRILOSEC [Suspect]
     Active Substance: OMEPRAZOLE MAGNESIUM
     Indication: Gastrooesophageal reflux disease
     Route: 048
     Dates: start: 2012, end: 2017
  11. PRILOSEC [Suspect]
     Active Substance: OMEPRAZOLE MAGNESIUM
     Indication: Gastrooesophageal reflux disease
     Dosage: GENERIC
     Route: 065
     Dates: start: 2012, end: 2018
  12. PRILOSEC [Suspect]
     Active Substance: OMEPRAZOLE MAGNESIUM
     Indication: Gastrooesophageal reflux disease
     Dosage: GENERIC
     Route: 065
     Dates: start: 2012, end: 2018
  13. AMIKACIN [Concomitant]
     Active Substance: AMIKACIN
     Indication: Infection
     Route: 065
     Dates: start: 201504
  14. LEVOFLOXACIN [Concomitant]
     Active Substance: LEVOFLOXACIN
     Indication: Infection
     Route: 065
     Dates: start: 2016, end: 2017
  15. LEVAQUIN [Concomitant]
     Active Substance: LEVOFLOXACIN
     Indication: Infection
     Route: 065
     Dates: start: 2016, end: 2017
  16. MINOCYCLINE [Concomitant]
     Active Substance: MINOCYCLINE HYDROCHLORIDE
     Indication: Infection
     Route: 065
     Dates: start: 201504
  17. PENICILLIN [Concomitant]
     Active Substance: PENICILLIN
     Indication: Infection
     Route: 065
     Dates: start: 2013, end: 2015
  18. SULFADIAZINE [Concomitant]
     Active Substance: SULFADIAZINE
     Indication: Infection
     Route: 065
     Dates: start: 2016, end: 2017
  19. TOBRAMYCIN [Concomitant]
     Active Substance: TOBRAMYCIN
     Indication: Infection
     Route: 065
     Dates: start: 201504
  20. TRIMETHOPRIM [Concomitant]
     Active Substance: TRIMETHOPRIM
     Indication: Infection
     Route: 065
     Dates: start: 201305
  21. ENALAPRIL [Concomitant]
     Active Substance: ENALAPRIL
     Indication: Blood pressure abnormal
     Route: 065
     Dates: start: 201504
  22. LISINOPRIL [Concomitant]
     Active Substance: LISINOPRIL
     Indication: Blood pressure abnormal
     Route: 065
     Dates: start: 201607
  23. LISINOPRIL [Concomitant]
     Active Substance: LISINOPRIL
     Indication: Blood pressure abnormal
     Route: 065
     Dates: start: 201607
  24. FUROSEMIDE [Concomitant]
     Active Substance: FUROSEMIDE
     Indication: Renal injury
     Route: 065
     Dates: start: 2016, end: 2017
  25. HYDRALAZINE [Concomitant]
     Active Substance: HYDRALAZINE HYDROCHLORIDE
     Indication: Blood pressure abnormal
     Route: 065
     Dates: start: 2015, end: 2017
  26. ZYLOPRIM [Concomitant]
     Active Substance: ALLOPURINOL
     Indication: Nephrolithiasis
     Route: 065
     Dates: start: 2016, end: 2017
  27. ZYLOPRIM [Concomitant]
     Active Substance: ALLOPURINOL
     Indication: Gout
     Route: 065
     Dates: start: 2016, end: 2017
  28. ACETAMINOPHEN [Concomitant]
     Active Substance: ACETAMINOPHEN
     Indication: Pain
  29. IBUPROFEN [Concomitant]
     Active Substance: IBUPROFEN
     Indication: Pain
  30. PEPCID [Concomitant]
     Active Substance: FAMOTIDINE
     Route: 065
     Dates: start: 2016, end: 2017
  31. TUMS [Concomitant]
     Active Substance: CALCIUM CARBONATE
  32. ROLAIDS [Concomitant]
     Active Substance: CALCIUM CARBONATE\MAGNESIUM HYDROXIDE
  33. CLINDAMYCIN [Concomitant]
     Active Substance: CLINDAMYCIN
  34. BACLOFEN [Concomitant]
     Active Substance: BACLOFEN
  35. NITROFURANTOIN [Concomitant]
     Active Substance: NITROFURANTOIN
  36. ALLOPURINOL [Concomitant]
     Active Substance: ALLOPURINOL
  37. APIXABAN [Concomitant]
     Active Substance: APIXABAN
  38. CLONIDINE [Concomitant]
     Active Substance: CLONIDINE
  39. DAPTOMYCIN [Concomitant]
     Active Substance: DAPTOMYCIN
  40. ONDANSETRON [Concomitant]
     Active Substance: ONDANSETRON
  41. SULFAMETHOXAZOLE [Concomitant]
     Active Substance: SULFAMETHOXAZOLE
  42. MUCINEX [Concomitant]
     Active Substance: GUAIFENESIN
  43. DILTIAZEM [Concomitant]
     Active Substance: DILTIAZEM
  44. IPRATROPIUM [Concomitant]
     Active Substance: IPRATROPIUM
  45. NYSTATIN [Concomitant]
     Active Substance: NYSTATIN
  46. LEVALBUTEROL [Concomitant]
     Active Substance: LEVALBUTEROL
  47. PROMETHAZINE [Concomitant]
     Active Substance: PROMETHAZINE HYDROCHLORIDE
  48. RIVAROXABAN [Concomitant]
     Active Substance: RIVAROXABAN
  49. NITROGLYCERIN [Concomitant]
     Active Substance: NITROGLYCERIN
  50. PREDNISONE [Concomitant]
     Active Substance: PREDNISONE
  51. LIDOCAINE [Concomitant]
     Active Substance: LIDOCAINE
  52. METHYLPREDNISOLONE [Concomitant]
     Active Substance: METHYLPREDNISOLONE

REACTIONS (3)
  - Acute kidney injury [Unknown]
  - Chronic kidney disease [Unknown]
  - End stage renal disease [Unknown]

NARRATIVE: CASE EVENT DATE: 20150101
